FAERS Safety Report 8831118 (Version 2)
Quarter: 2014Q2

REPORT INFORMATION
  Report Type: Spontaneous
  Country: US (occurrence: US)
  Receive Date: 20121008
  Receipt Date: 20140502
  Transmission Date: 20141212
  Serious: Yes (Hospitalization, Other)
  Sender: FDA-Public Use
  Company Number: US-BAYER-2012-103585

PATIENT
  Age: 27 Year
  Sex: Female

DRUGS (6)
  1. YAZ [Suspect]
     Dosage: UNK
     Dates: start: 20080901, end: 2009
  2. YASMIN [Suspect]
     Dosage: UNK
     Dates: start: 20080901, end: 2009
  3. RANITIDINE [Concomitant]
     Dosage: 150 MG, UNK
     Route: 048
     Dates: start: 20080519
  4. FERROUS FUMARATE [Concomitant]
     Dosage: 324 MG, UNK
     Route: 048
     Dates: start: 20080610, end: 20080702
  5. OXYCODONE/APAP [Concomitant]
     Dosage: 5-500MG
     Route: 048
     Dates: start: 20080821
  6. METOCLOPRAMIDE [Concomitant]
     Dosage: 10 MG, UNK
     Route: 048
     Dates: start: 20080830

REACTIONS (9)
  - Cholecystitis chronic [None]
  - Cholecystectomy [None]
  - Pain [None]
  - Injury [None]
  - General physical health deterioration [None]
  - Emotional distress [None]
  - Anhedonia [None]
  - Pain [None]
  - Anxiety [None]
